FAERS Safety Report 12415782 (Version 2)
Quarter: 2016Q2

REPORT INFORMATION
  Report Type: Spontaneous
  Country: JP (occurrence: JP)
  Receive Date: 20160530
  Receipt Date: 20160628
  Transmission Date: 20160815
  Serious: Yes (Other)
  Sender: FDA-Public Use
  Company Number: JP-SUN PHARMACEUTICAL INDUSTRIES LTD-2016RR-117358

PATIENT
  Age: 68 Year
  Sex: Male

DRUGS (10)
  1. BORTEZOMIB [Suspect]
     Active Substance: BORTEZOMIB
     Indication: PLASMACYTOMA
  2. CYCLOPHOSPHAMIDE. [Suspect]
     Active Substance: CYCLOPHOSPHAMIDE
     Indication: PLASMACYTOMA
  3. BORTEZOMIB [Suspect]
     Active Substance: BORTEZOMIB
     Indication: MALIGNANT NEOPLASM OF PLEURA
     Route: 065
  4. DEXAMETHASONE. [Suspect]
     Active Substance: DEXAMETHASONE
     Indication: PLASMACYTOMA
  5. DEXAMETHASONE. [Suspect]
     Active Substance: DEXAMETHASONE
     Indication: MALIGNANT NEOPLASM OF PLEURA
     Dosage: SECOUND ROUND
     Route: 065
  6. THALIDOMIDE [Concomitant]
     Active Substance: THALIDOMIDE
     Indication: PLASMACYTOMA
     Route: 065
  7. LENALIDOMIDE [Suspect]
     Active Substance: LENALIDOMIDE
     Indication: MALIGNANT NEOPLASM OF PLEURA
     Route: 065
  8. LENALIDOMIDE [Suspect]
     Active Substance: LENALIDOMIDE
     Indication: PLASMACYTOMA
  9. CYCLOPHOSPHAMIDE. [Suspect]
     Active Substance: CYCLOPHOSPHAMIDE
     Indication: MALIGNANT NEOPLASM OF PLEURA
     Dosage: HIGH-DOSE, SECOND ROUND
     Route: 065
  10. THALIDOMIDE [Concomitant]
     Active Substance: THALIDOMIDE
     Indication: MALIGNANT NEOPLASM OF PLEURA

REACTIONS (1)
  - Drug ineffective [Unknown]
